FAERS Safety Report 11697963 (Version 4)
Quarter: 2015Q4

REPORT INFORMATION
  Report Type: Spontaneous
  Country: US (occurrence: US)
  Receive Date: 20151104
  Receipt Date: 20151229
  Transmission Date: 20160304
  Serious: Yes (Hospitalization, Other)
  Sender: FDA-Public Use
  Company Number: US-OTSUKA-2015_013583

PATIENT
  Age: 30 Year
  Sex: Female

DRUGS (3)
  1. LITHIUM. [Concomitant]
     Active Substance: LITHIUM
     Indication: PRODUCT USED FOR UNKNOWN INDICATION
     Dosage: UNK
     Route: 065
  2. ABILIFY MAINTENA [Suspect]
     Active Substance: ARIPIPRAZOLE
     Indication: BIPOLAR DISORDER
     Dosage: UNK, QM
     Route: 030
     Dates: start: 201510
  3. ABILIFY MAINTENA [Suspect]
     Active Substance: ARIPIPRAZOLE
     Indication: PSYCHOTIC DISORDER

REACTIONS (7)
  - Suicide attempt [Unknown]
  - Suicidal ideation [Unknown]
  - Off label use [Unknown]
  - Treatment noncompliance [Unknown]
  - Hospitalisation [Recovered/Resolved]
  - Dyspnoea [Unknown]
  - Mania [Unknown]

NARRATIVE: CASE EVENT DATE: 201509
